FAERS Safety Report 6370296-8 (Version None)
Quarter: 2009Q3

REPORT INFORMATION
  Report Type: 
  Country: None (occurrence: None)
  Receive Date: 20090923
  Receipt Date: 20090915
  Transmission Date: 20100115
  Serious: Yes (Other)
  Sender: FDA-Public Use
  Company Number: CA-AMGEN-KDL320449

PATIENT
  Sex: Female
  Weight: 86.3 kg

DRUGS (5)
  1. ENBREL [Suspect]
     Indication: RHEUMATOID ARTHRITIS
     Route: 058
     Dates: start: 20081018, end: 20090714
  2. METHOTREXATE [Concomitant]
  3. SULFASALAZINE [Concomitant]
  4. FOLIC ACID [Concomitant]
  5. CELEBREX [Concomitant]

REACTIONS (4)
  - ASTHENIA [None]
  - BREAST CANCER [None]
  - BREAST MASS [None]
  - RASH [None]
